FAERS Safety Report 12459457 (Version 1)
Quarter: 2016Q2

REPORT INFORMATION
  Report Type: Spontaneous
  Country: US (occurrence: None)
  Receive Date: 20160610
  Receipt Date: 20160610
  Transmission Date: 20160815
  Serious: Yes (Hospitalization)
  Sender: FDA-Public Use
  Company Number: None

PATIENT
  Age: 45 Year
  Sex: Male

DRUGS (13)
  1. METOPROLOL TARTRATE. [Concomitant]
     Active Substance: METOPROLOL TARTRATE
  2. ASPIRIN. [Concomitant]
     Active Substance: ASPIRIN
  3. ATORVASTATIN [Concomitant]
     Active Substance: ATORVASTATIN
  4. SILDENAFIL 20MG TAB GREENSTONE [Suspect]
     Active Substance: SILDENAFIL
     Indication: PULMONARY ARTERIAL HYPERTENSION
     Route: 048
     Dates: start: 20160205
  5. ALEVE [Concomitant]
     Active Substance: NAPROXEN SODIUM
  6. HYDROCODONE [Concomitant]
     Active Substance: HYDROCODONE
  7. FUROSEMIDE. [Concomitant]
     Active Substance: FUROSEMIDE
  8. POTASSIUM [Concomitant]
     Active Substance: POTASSIUM
  9. ESCITALOPRAM [Concomitant]
     Active Substance: ESCITALOPRAM OXALATE
  10. IBUPROFEN. [Concomitant]
     Active Substance: IBUPROFEN
  11. CLOPIDOGREL [Concomitant]
     Active Substance: CLOPIDOGREL BISULFATE
  12. LOSARTIN [Concomitant]
     Active Substance: LOSARTAN
  13. JANTADUETO [Concomitant]

REACTIONS (3)
  - Drug dose omission [None]
  - Pericardial effusion [None]
  - Dizziness [None]

NARRATIVE: CASE EVENT DATE: 20160506
